FAERS Safety Report 4600973-8 (Version None)
Quarter: 2005Q1

REPORT INFORMATION
  Report Type: 
  Country: None (occurrence: None)
  Receive Date: 20050204
  Receipt Date: 20050110
  Transmission Date: 20050727
  Serious: Yes (Hospitalization, Disabling, Other)
  Sender: FDA-Public Use
  Company Number: USA040874240

PATIENT
  Age: 80 Year
  Sex: Female
  Weight: 50 kg

DRUGS (7)
  1. PROZAC [Suspect]
     Dates: end: 20010101
  2. FORTEO [Suspect]
     Indication: OSTEOPOROSIS
     Dosage: 20 UG/1 DAY
     Dates: start: 20040716
  3. EVISTA [Suspect]
     Dates: end: 20040701
  4. OSCAL (CALCIUM CARBONATE) [Concomitant]
  5. LOPRESSOR [Concomitant]
  6. XANAX (ALPRAZOLAM DUM) [Concomitant]
  7. THYROID TAB [Concomitant]

REACTIONS (15)
  - ANXIETY [None]
  - ARTHRALGIA [None]
  - BONE DENSITY DECREASED [None]
  - CYSTITIS [None]
  - FATIGUE [None]
  - FEELING ABNORMAL [None]
  - HEADACHE [None]
  - HERPES ZOSTER [None]
  - HYPERTENSION [None]
  - INAPPROPRIATE ANTIDIURETIC HORMONE SECRETION [None]
  - INJECTION SITE ERYTHEMA [None]
  - JOINT SPRAIN [None]
  - NAUSEA [None]
  - PAIN [None]
  - STRESS [None]
